FAERS Safety Report 15384642 (Version 2)
Quarter: 2018Q3

REPORT INFORMATION
  Report Type: Report from Study
  Country: US (occurrence: US)
  Receive Date: 20180914
  Receipt Date: 20180924
  Transmission Date: 20181010
  Serious: Yes (Other)
  Sender: FDA-Public Use
  Company Number: US-ROCHE-2183311

PATIENT
  Sex: Female

DRUGS (1)
  1. OCREVUS [Suspect]
     Active Substance: OCRELIZUMAB
     Indication: PRODUCT USED FOR UNKNOWN INDICATION
     Dosage: SPLIT DOSE ;ONGOING: YES
     Route: 065
     Dates: start: 20180815

REACTIONS (2)
  - Road traffic accident [Unknown]
  - Urinary tract infection [Recovered/Resolved]
